FAERS Safety Report 5110002-8 (Version None)
Quarter: 2006Q3

REPORT INFORMATION
  Report Type: 
  Country: None (occurrence: None)
  Receive Date: 20060731
  Receipt Date: 20060404
  Transmission Date: 20061208
  Serious: No
  Sender: FDA-Public Use
  Company Number: 2006PV011454

PATIENT
  Age: 38 Year
  Sex: Male
  Weight: 142.8831 kg

DRUGS (4)
  1. BYETTA [Suspect]
     Indication: DIABETES MELLITUS NON-INSULIN-DEPENDENT
     Dosage: SEE IMAGE
     Route: 058
     Dates: start: 20060320, end: 20060414
  2. BYETTA [Suspect]
     Indication: DIABETES MELLITUS NON-INSULIN-DEPENDENT
     Dosage: SEE IMAGE
     Route: 058
     Dates: start: 20060415
  3. METFORMIN HCL [Concomitant]
  4. GLYBURIDE [Concomitant]

REACTIONS (3)
  - ENERGY INCREASED [None]
  - THERAPEUTIC RESPONSE UNEXPECTED [None]
  - WEIGHT DECREASED [None]
